FAERS Safety Report 10926264 (Version 1)
Quarter: 2015Q1

REPORT INFORMATION
  Report Type: Spontaneous
  Country: US (occurrence: US)
  Receive Date: 20150318
  Receipt Date: 20150318
  Transmission Date: 20150721
  Serious: No
  Sender: FDA-Public Use
  Company Number: US-EISAI MEDICAL RESEARCH-EC-2015-004780

PATIENT
  Sex: Female

DRUGS (3)
  1. ACIPHEX [Suspect]
     Active Substance: RABEPRAZOLE SODIUM
     Indication: BARRETT^S OESOPHAGUS
     Route: 048
  2. ACIPHEX [Suspect]
     Active Substance: RABEPRAZOLE SODIUM
     Route: 048
  3. ACIPHEX [Suspect]
     Active Substance: RABEPRAZOLE SODIUM
     Route: 048

REACTIONS (1)
  - Drug effect decreased [Recovered/Resolved]
